FAERS Safety Report 10521636 (Version 1)
Quarter: 2014Q4

REPORT INFORMATION
  Report Type: Spontaneous
  Country: US (occurrence: None)
  Receive Date: 20141003
  Receipt Date: 20141003
  Transmission Date: 20150528
  Serious: Yes (Other)
  Sender: FDA-Public Use
  Company Number: 796008

PATIENT
  Age: 61 Year
  Sex: Male

DRUGS (6)
  1. RIBAVIRIN. [Suspect]
     Active Substance: RIBAVIRIN
     Indication: HEPATITIS C
     Dates: start: 199911, end: 200005
  2. EMTRICITABINE (EMTRICITABINE) UNKNOWN [Concomitant]
     Active Substance: EMTRICITABINE
  3. LOPINAVIR (LOPINAVIR) [Concomitant]
     Active Substance: LOPINAVIR
  4. TENOFOVIR (TENOFOVIR) UNKNOWN [Concomitant]
     Active Substance: TENOFOVIR
  5. PEG-INTERFERON ALFA 2A [Suspect]
     Active Substance: PEGINTERFERON ALFA-2A
     Indication: HEPATITIS C
     Dates: start: 200201, end: 200211
  6. RITONAVIR (RITONAVIR) [Concomitant]
     Active Substance: RITONAVIR

REACTIONS (1)
  - Neutropenia [None]
